FAERS Safety Report 20112629 (Version 2)
Quarter: 2022Q1

REPORT INFORMATION
  Report Type: Report from Study
  Country: US (occurrence: US)
  Receive Date: 20211125
  Receipt Date: 20220203
  Transmission Date: 20220423
  Serious: Yes (Other)
  Sender: FDA-Public Use
  Company Number: US-BIOGEN-2021BI01071460

PATIENT
  Sex: Female

DRUGS (1)
  1. TYSABRI [Suspect]
     Active Substance: NATALIZUMAB
     Indication: Multiple sclerosis
     Route: 065
     Dates: start: 20140821, end: 20210624

REACTIONS (5)
  - Blindness [Unknown]
  - Fall [Recovered/Resolved]
  - Aphasia [Unknown]
  - Influenza like illness [Unknown]
  - Product dose omission issue [Unknown]
